FAERS Safety Report 9156726 (Version 2)
Quarter: 2013Q2

REPORT INFORMATION
  Report Type: Spontaneous
  Country: PL (occurrence: None)
  Receive Date: 20130208
  Receipt Date: 20130426
  Transmission Date: 20140414
  Serious: Yes (Other)
  Sender: FDA-Public Use
  Company Number: 2013-0467

PATIENT
  Age: 83 Year
  Sex: Male
  Weight: 80 kg

DRUGS (7)
  1. SOMATULINE AUTOGEL [Suspect]
     Indication: NEUROENDOCRINE TUMOUR
     Dosage: 120 MG (120 MG, 1 IN 28 D), INTRAVENOUS (NOT OTHERWISE SPECIFIED)
     Route: 042
     Dates: start: 20120712, end: 20130108
  2. BISOCARD (BISOPROLOL) [Concomitant]
  3. DIUVER (TORASEMIDE) [Concomitant]
  4. KALIPOZ (POTASSIUM CHLORIDE) [Concomitant]
  5. PRAZOL (OMEPRAZOLE) [Concomitant]
  6. GLIBETIC [Concomitant]
  7. OMNIC (TAMSULOSIN HYDROCHLORIDE) [Concomitant]

REACTIONS (2)
  - Jaundice [None]
  - Cholelithiasis [None]
